FAERS Safety Report 7917138 (Version 3)
Quarter: 2013Q2

REPORT INFORMATION
  Report Type: Spontaneous
  Country: US (occurrence: US)
  Receive Date: 20110427
  Receipt Date: 20130417
  Transmission Date: 20140414
  Serious: Yes (Hospitalization)
  Sender: FDA-Public Use
  Company Number: US-BAYER-2011-034985

PATIENT
  Age: 22 Year
  Sex: Female
  Weight: 72 kg

DRUGS (8)
  1. YAZ [Suspect]
     Indication: CONTRACEPTION
     Dosage: UNK
     Dates: start: 200902, end: 200904
  2. YAZ [Suspect]
     Indication: PREMENSTRUAL SYNDROME
     Dosage: UNK
     Route: 048
     Dates: start: 20050921, end: 20090409
  3. YASMIN [Suspect]
     Dosage: UNK
     Dates: start: 20050921, end: 20090409
  4. SYNTHROID [Concomitant]
     Indication: HYPOTHYROIDISM
     Dosage: 50 ?G, EVERY DAY
     Route: 048
     Dates: start: 200508
  5. TOPROL XL [Concomitant]
     Indication: PALPITATIONS
     Dosage: 100 MG, EVERYDAY
     Route: 048
     Dates: start: 200509
  6. ADVIL [Concomitant]
     Dosage: UNK UNK, PRN AS NEEDED
     Dates: start: 200904
  7. MULTIVITAMINS [Concomitant]
     Route: 048
  8. NASACORT [Concomitant]
     Dosage: 2 SPRAYS EACH NOSTRIL

REACTIONS (11)
  - Pulmonary embolism [None]
  - Deep vein thrombosis [None]
  - Pelvic venous thrombosis [None]
  - General physical health deterioration [None]
  - Pain [None]
  - Emotional distress [None]
  - Anxiety [None]
  - Injury [None]
  - Anhedonia [None]
  - Dyspnoea [None]
  - Palpitations [None]
